FAERS Safety Report 10526611 (Version 2)
Quarter: 2014Q4

REPORT INFORMATION
  Report Type: Spontaneous
  Country: US (occurrence: None)
  Receive Date: 20141016
  Receipt Date: 20141020
  Transmission Date: 20150528
  Serious: Yes (Death)
  Sender: FDA-Public Use
  Company Number: US-MDCO-14-00255

PATIENT

DRUGS (1)
  1. ANGIOMAX [Suspect]
     Active Substance: BIVALIRUDIN
     Indication: ANGIOPLASTY
     Dosage: STANDARD DOSE
     Route: 041

REACTIONS (5)
  - Catheter site haemorrhage [None]
  - Shock haemorrhagic [None]
  - Incorrect drug administration rate [None]
  - Thoracic haemorrhage [None]
  - Post procedural haemorrhage [None]
